FAERS Safety Report 13139188 (Version 3)
Quarter: 2017Q1

REPORT INFORMATION
  Report Type: Report from Study
  Country: US (occurrence: US)
  Receive Date: 20170123
  Receipt Date: 20170206
  Transmission Date: 20170428
  Serious: Yes (Hospitalization)
  Sender: FDA-Public Use
  Company Number: US-PFIZER INC-2017024659

PATIENT
  Age: 84 Year
  Sex: Male
  Weight: 60 kg

DRUGS (17)
  1. MUCINEX [Concomitant]
     Active Substance: GUAIFENESIN
     Indication: RESPIRATORY DISORDER
     Dosage: 600 MG (1 TABLET), EVERY 12 HOURS, AS NEEDED DAYS 15
     Route: 048
     Dates: start: 20161123
  2. MIRTAZAPINE. [Concomitant]
     Active Substance: MIRTAZAPINE
     Dosage: 15 MG (1 TABLET), 1X/DAY (AT BEDTIME)
     Route: 048
     Dates: start: 20170110
  3. MINOCYCLINE HCL [Concomitant]
     Active Substance: MINOCYCLINE HYDROCHLORIDE
     Dosage: 100 MG, 2X/DAY
     Route: 048
     Dates: start: 20161123
  4. XALATAN [Concomitant]
     Active Substance: LATANOPROST
     Dosage: 0.005%
     Route: 047
  5. PALBOCICLIB [Suspect]
     Active Substance: PALBOCICLIB
     Indication: SQUAMOUS CELL CARCINOMA OF HEAD AND NECK
     Dosage: 125 MG, CYCLIC (ONCE DAILY, DAYS 1-21)
     Route: 048
     Dates: start: 20161109, end: 20170115
  6. ASPIRIN /00002701/ [Concomitant]
     Active Substance: ASPIRIN
     Dosage: 81 MG, UNK
     Route: 048
  7. LEVOTHYROXINE SODIUM. [Concomitant]
     Active Substance: LEVOTHYROXINE SODIUM
     Dosage: 75 UG, DAILY
     Route: 048
  8. LIPITOR [Concomitant]
     Active Substance: ATORVASTATIN CALCIUM
     Dosage: 20 MG (1 TABLET), DAILY
     Route: 048
  9. PROCHLORPERAZINE MALEATE. [Concomitant]
     Active Substance: PROCHLORPERAZINE MALEATE
     Indication: NAUSEA
     Dosage: 10 MG (1 TABLET), EVERY 6 HOURS, AS NEEDED DAYS 15
     Route: 048
     Dates: start: 20161116
  10. COSOPT [Concomitant]
     Active Substance: DORZOLAMIDE HYDROCHLORIDE\TIMOLOL MALEATE
     Dosage: 22.3-6.8 MG/ML, UNK
     Route: 047
  11. SENNA S [Concomitant]
     Active Substance: DOCUSATE SODIUM\SENNA LEAF
     Dosage: 8.6-50 MG, 1 TABLET, 2X/DAY
     Route: 048
     Dates: start: 20161123
  12. CETUXIMAB. [Suspect]
     Active Substance: CETUXIMAB
     Indication: SQUAMOUS CELL CARCINOMA OF HEAD AND NECK
     Dosage: 250 MG/M2, WEEKLY
     Route: 042
     Dates: start: 20161109, end: 20170110
  13. DEXAMETHASONE INTENSOL [Concomitant]
     Active Substance: DEXAMETHASONE
     Dosage: 4 ML (1 MG/ML), CYCLIC (EVERY 12 HOURS, DAYS 7)
     Route: 048
     Dates: start: 20161215
  14. PEPCID [Concomitant]
     Active Substance: FAMOTIDINE
     Dosage: 20 MG (1 TABLET), 2X/DAY
     Route: 048
     Dates: start: 20161123
  15. POLYETHYLENE GLYCOL [Concomitant]
     Active Substance: POLYETHYLENE GLYCOLS
     Indication: CONSTIPATION
     Dosage: UNK
     Route: 048
     Dates: start: 20161123
  16. POTASSIUM CITRATE. [Concomitant]
     Active Substance: POTASSIUM CITRATE
     Dosage: 10 MEQ (1080 MG), TABLET EXTENDED RELEASE
     Route: 048
     Dates: start: 20161130
  17. TOPROL XL [Concomitant]
     Active Substance: METOPROLOL SUCCINATE
     Dosage: 100 MG, DAILY
     Route: 048

REACTIONS (1)
  - Dysphagia [Unknown]

NARRATIVE: CASE EVENT DATE: 20170116
